FAERS Safety Report 9604583 (Version 2)
Quarter: 2013Q4

REPORT INFORMATION
  Report Type: Report from Study
  Country: DE (occurrence: DE)
  Receive Date: 20131008
  Receipt Date: 20131202
  Transmission Date: 20140711
  Serious: Yes (Hospitalization, Disabling)
  Sender: FDA-Public Use
  Company Number: DE-CELGENEUS-062-21660-13094016

PATIENT
  Age: 68 Year
  Sex: 0
  Weight: 48 kg

DRUGS (6)
  1. ABRAXANE [Suspect]
     Indication: BREAST CANCER METASTATIC
     Route: 041
     Dates: start: 20130423, end: 20130911
  2. GRANISETRON [Concomitant]
     Indication: ANTIEMETIC SUPPORTIVE CARE
     Dosage: 1 DOSAGE FORMS
     Route: 065
     Dates: start: 20130423, end: 20130911
  3. DEXAMETHASONE [Concomitant]
     Indication: ANTIEMETIC SUPPORTIVE CARE
     Dosage: 16 MILLIGRAM
     Route: 065
     Dates: start: 20130423, end: 20130911
  4. VERGENTAN [Concomitant]
     Indication: ANTIEMETIC SUPPORTIVE CARE
     Dosage: 1 TABLET
     Route: 065
     Dates: start: 20130423, end: 20130911
  5. ZOMETA [Concomitant]
     Indication: PROPHYLAXIS
     Dosage: /SM
     Route: 065
     Dates: start: 20130115
  6. RED BLOOD CELLS [Concomitant]
     Indication: ANAEMIA
     Route: 065
     Dates: start: 20130306

REACTIONS (2)
  - Haemolytic anaemia [Not Recovered/Not Resolved]
  - Delirium [Not Recovered/Not Resolved]
